FAERS Safety Report 4377011-8 (Version None)
Quarter: 2004Q2

REPORT INFORMATION
  Report Type: 
  Country: None (occurrence: None)
  Receive Date: 20040614
  Receipt Date: 20021206
  Transmission Date: 20050107
  Serious: Yes (Death)
  Sender: FDA-Public Use
  Company Number: US-GLAXOSMITHKLINE-A0388709A

PATIENT
  Age: 63 Year
  Sex: Male
  Weight: 68.2 kg

DRUGS (3)
  1. PAXIL [Suspect]
     Indication: ANXIETY
     Route: 048
     Dates: start: 20010912, end: 20010926
  2. XANAX [Concomitant]
     Indication: ANXIETY
  3. ZOLOFT [Concomitant]
     Indication: ANXIETY

REACTIONS (10)
  - ASTHENIA [None]
  - DEPRESSION [None]
  - DRUG WITHDRAWAL SYNDROME [None]
  - FATIGUE [None]
  - GUN SHOT WOUND [None]
  - INTENTIONAL SELF-INJURY [None]
  - LIBIDO DECREASED [None]
  - NAUSEA [None]
  - PERSONALITY CHANGE [None]
  - SLEEP DISORDER [None]
